FAERS Safety Report 5394985-7 (Version None)
Quarter: 2007Q3

REPORT INFORMATION
  Report Type: 
  Country: None (occurrence: None)
  Receive Date: 20070724
  Receipt Date: 20070712
  Transmission Date: 20080115
  Serious: Yes (Other)
  Sender: FDA-Public Use
  Company Number: PHBS2007IT11905

PATIENT
  Age: 67 Year
  Sex: Male

DRUGS (1)
  1. IMATINIB MESYLATE [Suspect]
     Indication: CHRONIC MYELOID LEUKAEMIA
     Dosage: 600 MG/D
     Route: 048

REACTIONS (8)
  - APLASIA [None]
  - BIOPSY BONE MARROW ABNORMAL [None]
  - BLOOD ALKALINE PHOSPHATASE INCREASED [None]
  - BLOOD LACTATE DEHYDROGENASE INCREASED [None]
  - BONE MARROW NECROSIS [None]
  - ERYTHROBLAST COUNT INCREASED [None]
  - HYPERPYREXIA [None]
  - PAIN IN EXTREMITY [None]
